FAERS Safety Report 16855534 (Version 2)
Quarter: 2019Q3

REPORT INFORMATION
  Report Type: Spontaneous
  Country: IT (occurrence: IT)
  Receive Date: 20190926
  Receipt Date: 20190926
  Transmission Date: 20191005
  Serious: Yes (Life-Threatening, Other)
  Sender: FDA-Public Use
  Company Number: IT-PFIZER INC-2019399133

PATIENT
  Age: 40 Year
  Sex: Male

DRUGS (2)
  1. PACLITAXEL. [Suspect]
     Active Substance: PACLITAXEL
     Indication: LUNG ADENOCARCINOMA STAGE II
     Dosage: 175 MG/M2, CYCLIC (ADJUVANT CHEMOTHERAPY)
     Dates: start: 2009, end: 2009
  2. CISPLATIN. [Concomitant]
     Active Substance: CISPLATIN
     Indication: LUNG ADENOCARCINOMA STAGE II
     Dosage: 100 MG/M2, CYCLIC (ADJUVANT CHEMOTHERAPY)
     Route: 042
     Dates: start: 2009, end: 2009

REACTIONS (1)
  - Toxicity to various agents [Unknown]

NARRATIVE: CASE EVENT DATE: 2009
